FAERS Safety Report 21145304 (Version 4)
Quarter: 2022Q4

REPORT INFORMATION
  Report Type: Report from Study
  Country: US (occurrence: US)
  Receive Date: 20220729
  Receipt Date: 20221103
  Transmission Date: 20230113
  Serious: No
  Sender: FDA-Public Use
  Company Number: US-NOVARTISTESTPH-NVSC2022US171305

PATIENT
  Sex: Female

DRUGS (2)
  1. KISQALI [Suspect]
     Active Substance: RIBOCICLIB
     Indication: Breast cancer
     Dosage: 400 MG, QD
     Route: 048
  2. LETROZOLE [Concomitant]
     Active Substance: LETROZOLE
     Indication: Breast cancer
     Dosage: UNK
     Route: 065

REACTIONS (11)
  - Pain [Recovering/Resolving]
  - Taste disorder [Not Recovered/Not Resolved]
  - Tongue rough [Not Recovered/Not Resolved]
  - Parosmia [Not Recovered/Not Resolved]
  - Pharyngitis streptococcal [Recovered/Resolved]
  - Oral pain [Recovered/Resolved]
  - Cancer pain [Unknown]
  - Tooth disorder [Not Recovered/Not Resolved]
  - Pain in extremity [Not Recovered/Not Resolved]
  - Neutrophil count decreased [Not Recovered/Not Resolved]
  - Decreased appetite [Not Recovered/Not Resolved]
